FAERS Safety Report 5083196-0 (Version None)
Quarter: 2006Q3

REPORT INFORMATION
  Report Type: 
  Country: None (occurrence: None)
  Receive Date: 20060724
  Receipt Date: 20031121
  Transmission Date: 20061208
  Serious: Yes (Hospitalization)
  Sender: FDA-Public Use
  Company Number: DRON00206001374

PATIENT
  Age: 48 Year
  Sex: Female

DRUGS (5)
  1. MARINOL [Suspect]
     Indication: MULTIPLE SCLEROSIS
     Dosage: DAILY ORAL: 5-15 MG, TITRATION
     Route: 048
     Dates: start: 20020131, end: 20030129
  2. MARINOL [Suspect]
     Indication: MUSCLE SPASTICITY
     Dosage: DAILY ORAL: 5-15 MG, TITRATION
     Route: 048
     Dates: start: 20020131, end: 20030129
  3. BACLOFEN [Concomitant]
  4. TOLTERODINE TARTRATE [Concomitant]
  5. FLUOXETINE [Concomitant]

REACTIONS (3)
  - CELLULITIS [None]
  - DIARRHOEA [None]
  - VOMITING [None]
